FAERS Safety Report 8430223-6 (Version None)
Quarter: 2012Q2

REPORT INFORMATION
  Report Type: 
  Country: None (occurrence: None)
  Receive Date: 20120612
  Receipt Date: 20120604
  Transmission Date: 20120825
  Serious: Yes (Other)
  Sender: FDA-Public Use
  Company Number: CA-BRISTOL-MYERS SQUIBB COMPANY-16619215

PATIENT
  Age: 1 Day
  Sex: Female
  Weight: 3 kg

DRUGS (5)
  1. NORVIR [Suspect]
     Route: 064
  2. KALETRA [Suspect]
     Dosage: 1 DF= 1 TAB/CAPS
     Route: 064
  3. TRUVADA [Suspect]
     Dosage: 1 DF= 1 TAB/CAPS
     Route: 064
  4. REYATAZ [Suspect]
     Route: 064
  5. RETROVIR [Suspect]
     Route: 064

REACTIONS (5)
  - CARDIOMEGALY [None]
  - MITRAL VALVE INCOMPETENCE [None]
  - PATENT DUCTUS ARTERIOSUS [None]
  - TRICUSPID VALVE INCOMPETENCE [None]
  - COARCTATION OF THE AORTA [None]
